FAERS Safety Report 8815425 (Version 1)
Quarter: 2012Q4

REPORT INFORMATION
  Report Type: 
  Country: GB (occurrence: GB)
  Receive Date: 20120928
  Receipt Date: 20120928
  Transmission Date: 20130627
  Serious: Yes (Hospitalization, Other)
  Sender: FDA-Public Use
  Company Number: GB-B.I. PHARMACEUTICALS,INC./RIDGEFIELD-2012-UK-01230UK

PATIENT
  Age: 51 Year

DRUGS (4)
  1. CATAPRES [Suspect]
     Dosage: 100 mcg
  2. ATROPINE [Suspect]
     Dosage: 1%
  3. GLYCOPYRRONIUM BROMIDE [Suspect]
     Dosage: 200 mcg
     Route: 058
  4. RILUZOLE [Suspect]
     Dosage: 50 mg

REACTIONS (2)
  - Feeding tube complication [Not Recovered/Not Resolved]
  - Excessive granulation tissue [Not Recovered/Not Resolved]
